FAERS Safety Report 24565698 (Version 2)
Quarter: 2024Q4

REPORT INFORMATION
  Report Type: Spontaneous
  Country: GB (occurrence: GB)
  Receive Date: 20241030
  Receipt Date: 20241230
  Transmission Date: 20250115
  Serious: Yes (Other)
  Sender: MYLAN
  Company Number: GB-MYLANLABS-2024M1097311

PATIENT
  Sex: Female

DRUGS (5)
  1. CLOZARIL [Suspect]
     Active Substance: CLOZAPINE
     Indication: Schizophrenia
     Dosage: UNK
     Route: 048
     Dates: start: 20240527, end: 20241021
  2. CLOZARIL [Suspect]
     Active Substance: CLOZAPINE
     Dosage: 300 MILLIGRAM (APPROXIMATELY AT 1.00 PM)
     Route: 048
     Dates: start: 20241022
  3. CLOZARIL [Suspect]
     Active Substance: CLOZAPINE
     Dosage: 3 DOSAGE FORM (OVERDOSE OF 3 TABLETS)
     Route: 048
  4. CLOZARIL [Suspect]
     Active Substance: CLOZAPINE
     Dosage: 25 MILLIGRAM
     Route: 065
     Dates: end: 20241217
  5. ACETAMINOPHEN [Suspect]
     Active Substance: ACETAMINOPHEN
     Indication: Product used for unknown indication
     Dosage: UNK
     Route: 065

REACTIONS (2)
  - Overdose [Unknown]
  - Toxicity to various agents [Unknown]
